FAERS Safety Report 8322009-8 (Version None)
Quarter: 2012Q2

REPORT INFORMATION
  Report Type: 
  Country: None (occurrence: None)
  Receive Date: 20120430
  Receipt Date: 20120423
  Transmission Date: 20120825
  Serious: Yes (Hospitalization)
  Sender: FDA-Public Use
  Company Number: US-AMGEN-USASP2012025565

PATIENT
  Age: 53 Year
  Sex: Female

DRUGS (1)
  1. ENBREL [Suspect]
     Indication: RHEUMATOID ARTHRITIS
     Dosage: 50 MG, ONCE IN 10 DAYS
     Dates: start: 19990401

REACTIONS (10)
  - RHEUMATOID ARTHRITIS [None]
  - ULNA FRACTURE [None]
  - OESOPHAGEAL HAEMORRHAGE [None]
  - RECTAL HAEMORRHAGE [None]
  - LIMB ASYMMETRY [None]
  - MALAISE [None]
  - FALL [None]
  - ASTHENIA [None]
  - HIP FRACTURE [None]
  - STAPHYLOCOCCAL INFECTION [None]
